FAERS Safety Report 5860509-0 (Version None)
Quarter: 2008Q3

REPORT INFORMATION
  Report Type: 
  Country: None (occurrence: None)
  Receive Date: 20080827
  Receipt Date: 20070928
  Transmission Date: 20090109
  Serious: No
  Sender: FDA-Public Use
  Company Number: US-ABBOTT-07P-163-0418835-00

PATIENT
  Sex: Female
  Weight: 63.56 kg

DRUGS (6)
  1. COATED PDS [Suspect]
     Indication: LOW DENSITY LIPOPROTEIN INCREASED
     Route: 048
     Dates: start: 20070911, end: 20070924
  2. GABAPENTIN [Concomitant]
     Indication: NEURALGIA
     Route: 048
  3. KINERET [Concomitant]
     Indication: ANTIINFLAMMATORY THERAPY
     Route: 050
  4. KINERET [Concomitant]
     Indication: IMMUNE SYSTEM DISORDER
  5. KINERET [Concomitant]
     Indication: SYSTEMIC LUPUS ERYTHEMATOSUS
  6. PROCHLORPERAZINE EDISYLATE [Concomitant]
     Indication: DRUG USE FOR UNKNOWN INDICATION

REACTIONS (16)
  - AGITATION [None]
  - BURNING SENSATION [None]
  - CHEST PAIN [None]
  - CHILLS [None]
  - DIZZINESS [None]
  - ERYTHEMA [None]
  - EYE HAEMORRHAGE [None]
  - FEELING ABNORMAL [None]
  - FEELING COLD [None]
  - FLUSHING [None]
  - GENERALISED ERYTHEMA [None]
  - NEURALGIA [None]
  - PALPITATIONS [None]
  - RASH MACULAR [None]
  - SNEEZING [None]
  - TREMOR [None]
